FAERS Safety Report 16963097 (Version 1)
Quarter: 2019Q4

REPORT INFORMATION
  Report Type: Spontaneous
  Country: US (occurrence: US)
  Receive Date: 20191025
  Receipt Date: 20191025
  Transmission Date: 20200122
  Serious: Yes (Death, Hospitalization, Other)
  Sender: FDA-Public Use
  Company Number: US-FLEXION THERAPEUTICS, INC.-2019FLS000155

PATIENT
  Sex: Male

DRUGS (1)
  1. ZILRETTA [Suspect]
     Active Substance: TRIAMCINOLONE ACETONIDE
     Indication: PRODUCT USED FOR UNKNOWN INDICATION
     Route: 014
     Dates: start: 20190802, end: 20190802

REACTIONS (6)
  - Endocarditis [Unknown]
  - Meniscus injury [Unknown]
  - Cerebrovascular accident [Fatal]
  - Fall [Recovered/Resolved]
  - Infection [Unknown]
  - Skin abrasion [Unknown]

NARRATIVE: CASE EVENT DATE: 2019
